FAERS Safety Report 9610987 (Version 1)
Quarter: 2013Q4

REPORT INFORMATION
  Report Type: Spontaneous
  Country: CA (occurrence: CA)
  Receive Date: 20131009
  Receipt Date: 20131009
  Transmission Date: 20140711
  Serious: Yes (Other)
  Sender: FDA-Public Use
  Company Number: CA-GLAXOSMITHKLINE-A1043380A

PATIENT
  Age: 72 Year
  Sex: Female

DRUGS (2)
  1. ADVAIR INHALER [Suspect]
     Indication: PRODUCT USED FOR UNKNOWN INDICATION
  2. ADVAIR [Suspect]
     Indication: PRODUCT USED FOR UNKNOWN INDICATION
     Route: 065

REACTIONS (7)
  - Vision blurred [Unknown]
  - Hearing impaired [Unknown]
  - Constipation [Unknown]
  - Eye pruritus [Unknown]
  - Pruritus [Unknown]
  - Lung infection [Unknown]
  - Drug ineffective [Unknown]
